FAERS Safety Report 21056401 (Version 2)
Quarter: 2022Q3

REPORT INFORMATION
  Report Type: Report from Study
  Country: CA (occurrence: CA)
  Receive Date: 20220708
  Receipt Date: 20220719
  Transmission Date: 20221027
  Serious: Yes (Death)
  Sender: FDA-Public Use
  Company Number: CA-Taiho Oncology Inc-EU-2022-01479

PATIENT
  Age: 71 Year
  Sex: Female

DRUGS (9)
  1. LONSURF [Suspect]
     Active Substance: TIPIRACIL HYDROCHLORIDE\TRIFLURIDINE
     Indication: Colorectal cancer metastatic
     Dosage: DOSE AND FREQUENCY UNKNOWN. CYCLE NUMBER 1
     Route: 048
     Dates: start: 20220606, end: 20220617
  2. PROBIOTICS NOS [Concomitant]
     Active Substance: PROBIOTICS NOS
  3. VITAMIN D [Concomitant]
     Active Substance: VITAMIN D NOS
  4. RIVAROXABAN [Concomitant]
     Active Substance: RIVAROXABAN
  5. DEXAMETHASONE [Concomitant]
     Active Substance: DEXAMETHASONE
  6. GABAPENTIN [Concomitant]
     Active Substance: GABAPENTIN
  7. MORPHINE [Concomitant]
     Active Substance: MORPHINE
  8. TYLENOL EXTRA STRENGTH [Concomitant]
     Active Substance: ACETAMINOPHEN
  9. NYSTATIN [Concomitant]
     Active Substance: NYSTATIN

REACTIONS (2)
  - Disease progression [Fatal]
  - Gastrooesophageal reflux disease [Unknown]

NARRATIVE: CASE EVENT DATE: 20220626
